FAERS Safety Report 24926852 (Version 2)
Quarter: 2025Q1

REPORT INFORMATION
  Report Type: Spontaneous
  Country: JP (occurrence: JP)
  Receive Date: 20250205
  Receipt Date: 20250326
  Transmission Date: 20250408
  Serious: Yes (Other)
  Sender: TAKEDA
  Company Number: JP-OTSUKA-2025_002392

PATIENT
  Age: 7 Decade
  Sex: Male

DRUGS (5)
  1. ICLUSIG [Suspect]
     Active Substance: PONATINIB HYDROCHLORIDE
     Indication: Chronic myeloid leukaemia
  2. ICLUSIG [Suspect]
     Active Substance: PONATINIB HYDROCHLORIDE
     Dosage: 15 MILLIGRAM, 3/WEEK
  3. ICLUSIG [Suspect]
     Active Substance: PONATINIB HYDROCHLORIDE
  4. ICLUSIG [Suspect]
     Active Substance: PONATINIB HYDROCHLORIDE
     Dosage: 15 MILLIGRAM, 1/WEEK
  5. IMATINIB MESYLATE [Concomitant]
     Active Substance: IMATINIB MESYLATE
     Indication: Product used for unknown indication

REACTIONS (5)
  - Prostate cancer [Unknown]
  - Inappropriate schedule of product administration [Unknown]
  - Therapy cessation [Unknown]
  - Treatment noncompliance [Unknown]
  - Myalgia [Unknown]

NARRATIVE: CASE EVENT DATE: 20180101
